FAERS Safety Report 17066070 (Version 2)
Quarter: 2019Q4

REPORT INFORMATION
  Report Type: Spontaneous
  Country: FR (occurrence: FR)
  Receive Date: 20191122
  Receipt Date: 20191226
  Transmission Date: 20200122
  Serious: Yes (Other)
  Sender: FDA-Public Use
  Company Number: FR-009507513-1911FRA008040

PATIENT
  Age: 52 Year
  Sex: Female

DRUGS (3)
  1. ACECLOFENAC [Suspect]
     Active Substance: ACECLOFENAC
     Indication: ANALGESIC THERAPY
     Dosage: 200 MILLIGRAM, QD
     Route: 048
     Dates: start: 20190916, end: 20191103
  2. KENACORT [Suspect]
     Active Substance: TRIAMCINOLONE
     Indication: ARTHRITIS
     Dosage: UNK
     Route: 030
     Dates: start: 20190915
  3. DIPROSTENE [Suspect]
     Active Substance: BETAMETHASONE DIPROPIONATE\BETAMETHASONE SODIUM PHOSPHATE
     Indication: ARTHRITIS
     Dosage: UNK
     Route: 030
     Dates: start: 20191020

REACTIONS (2)
  - Face oedema [Recovered/Resolved]
  - Intentional product use issue [Unknown]

NARRATIVE: CASE EVENT DATE: 20191028
